FAERS Safety Report 9103036 (Version 1)
Quarter: 2013Q1

REPORT INFORMATION
  Report Type: Spontaneous
  Country: US (occurrence: US)
  Receive Date: 20130219
  Receipt Date: 20130219
  Transmission Date: 20140127
  Serious: Yes (Hospitalization)
  Sender: FDA-Public Use
  Company Number: US-PFIZER INC-2013060451

PATIENT
  Age: 76 Year
  Sex: Female

DRUGS (3)
  1. PROPANOLOL HCL [Suspect]
     Indication: HYPERTENSION
     Dosage: 120 MG, DAILY
     Route: 048
  2. PROMETHAZINE [Concomitant]
     Indication: ARTHROPATHY
     Dosage: UNK
  3. SINGULAIR [Concomitant]
     Dosage: UNK

REACTIONS (2)
  - Memory impairment [Unknown]
  - Syncope [Unknown]
